FAERS Safety Report 9402840 (Version 3)
Quarter: 2013Q3

REPORT INFORMATION
  Report Type: Spontaneous
  Country: US (occurrence: None)
  Receive Date: 20130712
  Receipt Date: 20130830
  Transmission Date: 20140515
  Serious: Yes (Hospitalization, Other)
  Sender: FDA-Public Use
  Company Number: ACO_37194_2013

PATIENT
  Age: 61 Year
  Sex: Female
  Weight: 108.4 kg

DRUGS (11)
  1. AMPYRA [Suspect]
     Indication: GAIT DISTURBANCE
     Route: 048
     Dates: start: 20130621, end: 20130628
  2. AMPYRA [Suspect]
     Indication: MULTIPLE SCLEROSIS
     Route: 048
     Dates: start: 20130621, end: 20130628
  3. BACLOFEN (BACLOFEN), 20 MG [Concomitant]
  4. NEUTRONIN (GABAPENTIN), 400 MG [Concomitant]
  5. FUROSEMIDE (FUROSEMIDE), 20 MG [Concomitant]
  6. POTASSIUM CHLORIDE (POTASSIUM CHLORIDE), 10MEQ [Concomitant]
  7. CITALOPRAM (CITALOPRAM HYDROBROMIDE), 20 MG [Concomitant]
  8. ROPINIROLE HYDROCHLORIDE (ROPINIROLE HYDROCHLORIDE) [Concomitant]
  9. MELATONIN (MELATONIN) [Concomitant]
  10. CALCIUM (CALCIUM), 1000MG [Concomitant]
  11. DOCUSATE CALCIUM (DOCUSATE CALCIUM) [Concomitant]

REACTIONS (10)
  - Dyspnoea [None]
  - Anaemia [None]
  - Tibia fracture [None]
  - Urinary tract infection [None]
  - Dysarthria [None]
  - Dysarthria [None]
  - Vision blurred [None]
  - Eye disorder [None]
  - Hypoxia [None]
  - Fall [None]
